FAERS Safety Report 10429903 (Version 3)
Quarter: 2017Q2

REPORT INFORMATION
  Report Type: Spontaneous
  Country: US (occurrence: US)
  Receive Date: 20140904
  Receipt Date: 20170511
  Transmission Date: 20170829
  Serious: Yes (Hospitalization)
  Sender: FDA-Public Use
  Company Number: US-SA-2014SA118755

PATIENT
  Age: 64 Year
  Sex: Female

DRUGS (8)
  1. LANTUS SOLOSTAR [Suspect]
     Active Substance: INSULIN GLARGINE
     Indication: TYPE 1 DIABETES MELLITUS
     Dosage: THERAPY START DATE REPORTED AS ^FOR YEARS^ DOSE:8 UNIT(S)
     Route: 051
     Dates: start: 2015
  2. SOLOSTAR [Suspect]
     Active Substance: DEVICE
     Indication: TYPE 1 DIABETES MELLITUS
     Dates: start: 2014
  3. APIDRA [Suspect]
     Active Substance: INSULIN GLULISINE
     Indication: TYPE 1 DIABETES MELLITUS
     Dosage: THERAPY START DATE REPORTED AS ^FOR YEARS^ DOSE:2 UNIT(S)
     Route: 058
     Dates: start: 2014
  4. SOLOSTAR [Suspect]
     Active Substance: DEVICE
     Indication: TYPE 1 DIABETES MELLITUS
     Dates: start: 2015
  5. LANTUS SOLOSTAR [Suspect]
     Active Substance: INSULIN GLARGINE
     Indication: TYPE 1 DIABETES MELLITUS
     Dosage: THERAPY START DATE REPORTED AS ^FOR YEARS^ DOSE:8 UNIT(S)
     Route: 051
     Dates: start: 2014
  6. APIDRA [Suspect]
     Active Substance: INSULIN GLULISINE
     Indication: TYPE 1 DIABETES MELLITUS
     Dosage: THERAPY START DATE REPORTED AS ^FOR YEARS^ DOSE:2 UNIT(S)
     Route: 058
     Dates: end: 2014
  7. HUMALOG [Concomitant]
     Active Substance: INSULIN LISPRO
  8. LIDOCAINE. [Concomitant]
     Active Substance: LIDOCAINE
     Dosage: PATCH

REACTIONS (9)
  - Gastrooesophageal reflux disease [Unknown]
  - Injection site haemorrhage [Unknown]
  - Blood glucose abnormal [Not Recovered/Not Resolved]
  - Hiatus hernia [Unknown]
  - Injection site bruising [Unknown]
  - Dysphagia [Unknown]
  - Incorrect product storage [Unknown]
  - Blood glucose increased [Unknown]
  - Device issue [Unknown]

NARRATIVE: CASE EVENT DATE: 2014
